FAERS Safety Report 8159671-9 (Version None)
Quarter: 2012Q1

REPORT INFORMATION
  Report Type: 
  Country: None (occurrence: None)
  Receive Date: 20120223
  Receipt Date: 20101025
  Transmission Date: 20120608
  Serious: Yes (Other)
  Sender: FDA-Public Use
  Company Number: US-ROCHE-736806

PATIENT
  Sex: Female
  Weight: 68 kg

DRUGS (6)
  1. BONIVA [Suspect]
     Indication: OSTEOPOROSIS
     Route: 048
  2. PRILOSEC [Concomitant]
  3. FOSAMAX [Concomitant]
  4. CALCIUM [Concomitant]
  5. PREMPRO [Concomitant]
  6. UNKNOWN MEDICATION [Concomitant]
     Dosage: DRUG REPORTED AS OMEGA-3

REACTIONS (5)
  - INSOMNIA [None]
  - HIP FRACTURE [None]
  - FALL [None]
  - OSTEOPOROSIS [None]
  - BONE DENSITY ABNORMAL [None]
